FAERS Safety Report 6931195-3 (Version None)
Quarter: 2010Q3

REPORT INFORMATION
  Report Type: 
  Country: None (occurrence: None)
  Receive Date: 20100818
  Receipt Date: 20100803
  Transmission Date: 20110219
  Serious: Yes (Other)
  Sender: FDA-Public Use
  Company Number: PHHY2010BR51336

PATIENT
  Sex: Female

DRUGS (2)
  1. DIOVAN [Suspect]
     Dosage: UNK
     Dates: start: 20100727
  2. SERTRALINE HYDROCHLORIDE [Concomitant]
     Dosage: UNK
     Dates: start: 20000101

REACTIONS (5)
  - AGITATION [None]
  - ANXIETY [None]
  - DEPRESSED MOOD [None]
  - MOOD ALTERED [None]
  - NERVOUSNESS [None]
